FAERS Safety Report 7518679-4 (Version None)
Quarter: 2011Q2

REPORT INFORMATION
  Report Type: 
  Country: None (occurrence: None)
  Receive Date: 20110602
  Receipt Date: 20110519
  Transmission Date: 20111010
  Serious: Yes (Hospitalization)
  Sender: FDA-Public Use
  Company Number: PHFR2011GB03200

PATIENT
  Age: 47 Year
  Sex: Female
  Weight: 118.2 kg

DRUGS (16)
  1. VENTOLIN [Concomitant]
  2. DULOXETINE HYDROCHLORIDE [Concomitant]
  3. LORAZEPAM [Concomitant]
  4. PRAZOSIN HYDROCHLORIDE [Concomitant]
  5. VALPROATE SODIUM [Concomitant]
  6. DIAZEPAM [Concomitant]
  7. ACETAMINOPHEN [Concomitant]
  8. CLOZARIL [Suspect]
     Indication: SCHIZOPHRENIA
     Dosage: 325 MG, QD
     Route: 048
     Dates: start: 20051101
  9. ARIPIPRAZOLE [Concomitant]
  10. FLOXACILLIN SODIUM [Concomitant]
  11. HYOSCINE HYDROBROMIDE [Concomitant]
  12. ORLISTAT [Concomitant]
  13. MULTI-VITAMINS [Concomitant]
  14. OMEPRAZOLE [Concomitant]
  15. SOLIFENACIN SUCCINATE [Concomitant]
  16. ZOPICLONE [Concomitant]

REACTIONS (3)
  - PULMONARY EMBOLISM [None]
  - DYSPNOEA [None]
  - OXYGEN SATURATION DECREASED [None]
